FAERS Safety Report 4486405-1 (Version None)
Quarter: 2004Q4

REPORT INFORMATION
  Report Type: 
  Country: None (occurrence: None)
  Receive Date: 20041027
  Receipt Date: 20041005
  Transmission Date: 20050328
  Serious: Yes (Hospitalization)
  Sender: FDA-Public Use
  Company Number: US-ABBOTT-04P-163-0276154-00

PATIENT
  Sex: Male

DRUGS (5)
  1. TRICOR [Suspect]
     Indication: BLOOD TRIGLYCERIDES INCREASED
     Route: 048
     Dates: start: 20040903, end: 20040920
  2. CARVEDILOL [Concomitant]
     Indication: DIURETIC THERAPY
     Route: 065
  3. CARVEDILOL [Concomitant]
     Indication: CARDIAC DISORDER
  4. ACETYLSALICYLIC ACID [Concomitant]
     Indication: CARDIAC DISORDER
     Route: 048
  5. FUROSEMIDE [Concomitant]
     Indication: CARDIAC DISORDER
     Route: 048

REACTIONS (3)
  - ATRIAL FLUTTER [None]
  - CONDITION AGGRAVATED [None]
  - PANCREATITIS [None]
